FAERS Safety Report 24756424 (Version 3)
Quarter: 2025Q1

REPORT INFORMATION
  Report Type: Report from Study
  Country: US (occurrence: US)
  Receive Date: 20241220
  Receipt Date: 20250310
  Transmission Date: 20250408
  Serious: No
  Sender: ACADIA PHARMACEUTICALS
  Company Number: US-ACADIA PHARMACEUTICALS INC.-ACA-2024-TRF-008141

PATIENT

DRUGS (3)
  1. DAYBUE [Suspect]
     Active Substance: TROFINETIDE
     Indication: Rett syndrome
     Dosage: 40 MILLILITER, QID
     Route: 048
  2. GUANFACINE [Concomitant]
     Active Substance: GUANFACINE
     Dates: start: 20250128
  3. Buanfauce [Concomitant]

REACTIONS (1)
  - Diarrhoea [Not Recovered/Not Resolved]
